FAERS Safety Report 24776550 (Version 1)
Quarter: 2024Q4

REPORT INFORMATION
  Report Type: Spontaneous
  Country: US (occurrence: US)
  Receive Date: 20241226
  Receipt Date: 20241226
  Transmission Date: 20250115
  Serious: Yes (Other)
  Sender: AUROBINDO
  Company Number: US-MLMSERVICE-20241210-PI282978-00263-2

PATIENT
  Age: 60 Year
  Sex: Male

DRUGS (2)
  1. PIPERACILLIN AND TAZOBACTAM [Suspect]
     Active Substance: PIPERACILLIN SODIUM\TAZOBACTAM SODIUM
     Indication: Evidence based treatment
     Dosage: UNK
     Route: 065
  2. TACROLIMUS [Concomitant]
     Active Substance: TACROLIMUS
     Indication: Immunosuppressant drug therapy
     Dosage: 2 MILLIGRAM, TWO TIMES A DAY
     Route: 065

REACTIONS (7)
  - Pancytopenia [Unknown]
  - Encephalopathy [Unknown]
  - Hypertransaminasaemia [Unknown]
  - Condition aggravated [Unknown]
  - Confusional state [Unknown]
  - Lethargy [Unknown]
  - Diarrhoea [Recovered/Resolved]
